FAERS Safety Report 6847780-3 (Version None)
Quarter: 2010Q3

REPORT INFORMATION
  Report Type: 
  Country: None (occurrence: None)
  Receive Date: 20100716
  Receipt Date: 20100702
  Transmission Date: 20110219
  Serious: Yes (Other)
  Sender: FDA-Public Use
  Company Number: US-PAR PHARMACEUTICAL, INC-2010SCPR001390

PATIENT

DRUGS (5)
  1. MINOXIDIL [Suspect]
     Indication: HYPERTENSION
     Dosage: 20 MG, BID
     Route: 065
  2. MINOXIDIL [Suspect]
     Dosage: 10 MG, BID
     Route: 065
  3. ATENOLOL [Concomitant]
     Indication: PRODUCT USED FOR UNKNOWN INDICATION
     Dosage: UNK
     Route: 065
  4. LISINOPRIL [Concomitant]
     Indication: PRODUCT USED FOR UNKNOWN INDICATION
     Dosage: UNK
     Route: 065
  5. HYDROCHLOROTHIAZIDE [Concomitant]
     Indication: PRODUCT USED FOR UNKNOWN INDICATION
     Dosage: UNK
     Route: 065

REACTIONS (5)
  - HYPERSENSITIVITY [None]
  - IDIOSYNCRATIC DRUG REACTION [None]
  - PLEURAL EFFUSION [None]
  - PNEUMONIA [None]
  - PROTEIN TOTAL INCREASED [None]
